FAERS Safety Report 18796508 (Version 1)
Quarter: 2021Q1

REPORT INFORMATION
  Report Type: Report from Study
  Country: TH (occurrence: TH)
  Receive Date: 20210127
  Receipt Date: 20210127
  Transmission Date: 20210419
  Serious: Yes (Other)
  Sender: FDA-Public Use
  Company Number: NVSC2021TH015065

PATIENT
  Age: 48 Year
  Sex: Male

DRUGS (1)
  1. CYCLOSPORINE. [Suspect]
     Active Substance: CYCLOSPORINE
     Indication: RENAL TRANSPLANT
     Dosage: 6 DF, QD (25 MG, 3TABS MORNING AND 3TABS EVENING)
     Route: 048

REACTIONS (2)
  - Gingival swelling [Unknown]
  - Angioedema [Unknown]
